FAERS Safety Report 7279799-5 (Version None)
Quarter: 2011Q1

REPORT INFORMATION
  Report Type: 
  Country: None (occurrence: None)
  Receive Date: 20110203
  Receipt Date: 20110203
  Transmission Date: 20110831
  Serious: Yes (Other)
  Sender: FDA-Public Use
  Company Number: None

PATIENT
  Age: 54 Year
  Sex: Female
  Weight: 78.0187 kg

DRUGS (4)
  1. AMRIX [Concomitant]
  2. LYRICA [Concomitant]
  3. OXYCONTIN [Suspect]
     Indication: PAIN
     Dosage: 20 MG 12 H PO
     Route: 048
  4. 10-325 NORCO [Concomitant]

REACTIONS (3)
  - DRUG INEFFECTIVE [None]
  - PRODUCT FORMULATION ISSUE [None]
  - DRUG WITHDRAWAL SYNDROME [None]
